FAERS Safety Report 10970473 (Version 1)
Quarter: 2015Q1

REPORT INFORMATION
  Report Type: Report from Study
  Country: CA (occurrence: CA)
  Receive Date: 20150331
  Receipt Date: 20150331
  Transmission Date: 20150721
  Serious: Yes (Other)
  Sender: FDA-Public Use
  Company Number: CA-ABBVIE-15K-028-1366303-00

PATIENT
  Age: 58 Year
  Sex: Female
  Weight: 57.66 kg

DRUGS (1)
  1. HUMIRA [Suspect]
     Active Substance: ADALIMUMAB
     Indication: CROHN^S DISEASE
     Route: 058
     Dates: start: 20121207, end: 201401

REACTIONS (7)
  - Dehydration [Recovered/Resolved]
  - Intestinal scarring [Recovered/Resolved]
  - Post procedural complication [Recovered/Resolved]
  - Large intestinal stenosis [Recovered/Resolved]
  - Blood magnesium abnormal [Recovered/Resolved]
  - Renal disorder [Recovered/Resolved]
  - Myocardial strain [Recovered/Resolved]

NARRATIVE: CASE EVENT DATE: 201402
